FAERS Safety Report 10464735 (Version 4)
Quarter: 2014Q4

REPORT INFORMATION
  Report Type: Spontaneous
  Country: GB (occurrence: GB)
  Receive Date: 20140919
  Receipt Date: 20141118
  Transmission Date: 20150528
  Serious: Yes (Other)
  Sender: FDA-Public Use
  Company Number: GB-WATSON-2014-20058

PATIENT
  Sex: Male

DRUGS (5)
  1. METFORMIN (UNKNOWN) [Interacting]
     Active Substance: METFORMIN HYDROCHLORIDE
     Indication: PRODUCT USED FOR UNKNOWN INDICATION
     Dosage: 1000 MG, BID
     Route: 065
  2. LEVOTHYROXINE [Interacting]
     Active Substance: LEVOTHYROXINE
     Indication: PRODUCT USED FOR UNKNOWN INDICATION
     Dosage: 150 ?G, DAILY ( 25 MCG, 6 TIMES DAILY)
     Route: 048
  3. LEVOTHYROXINE [Interacting]
     Active Substance: LEVOTHYROXINE
     Dosage: 200 ?G, DAILY (25 MCG, 8 TIMES DAILY)
     Route: 048
  4. GLICLAZIDE (UNKNOWN) [Interacting]
     Active Substance: GLICLAZIDE
     Indication: PRODUCT USED FOR UNKNOWN INDICATION
     Dosage: 80 MG, BID
     Route: 065
  5. CLOZAPINE (UNKNOWN) [Suspect]
     Active Substance: CLOZAPINE
     Indication: PRODUCT USED FOR UNKNOWN INDICATION
     Dosage: 350 MG, DAILY  (100 MG WITH BREAKFAST, 250 MG AT BEDTIME)
     Route: 065

REACTIONS (2)
  - Drug interaction [Unknown]
  - Blood glucose increased [Unknown]
